FAERS Safety Report 4819050-6 (Version None)
Quarter: 2005Q4

REPORT INFORMATION
  Report Type: 
  Country: None (occurrence: None)
  Receive Date: 20051101
  Receipt Date: 20051101
  Transmission Date: 20060501
  Serious: Yes (Hospitalization)
  Sender: FDA-Public Use
  Company Number: None

PATIENT
  Sex: Male
  Weight: 100.2449 kg

DRUGS (15)
  1. FUROSEMIDE [Suspect]
     Indication: CARDIAC FAILURE CONGESTIVE
     Dosage: 40 MG DAILY  INCREASED
     Dates: start: 20050812, end: 20050904
  2. LISINOPRIL [Suspect]
     Indication: CARDIAC FAILURE CONGESTIVE
     Dosage: 40 MG DAILY  RENEWED
     Dates: start: 20050315
  3. NAPROXEN [Suspect]
     Indication: PAIN
     Dosage: 250 MG BID
     Dates: start: 20050110, end: 20050914
  4. DIGOXIN [Concomitant]
  5. METOPROLOL SUCCINATE [Concomitant]
  6. SIMVASTATIN [Concomitant]
  7. CLOTRIMAZOLE [Concomitant]
  8. BARIUM SULFATE [Concomitant]
  9. ACCU-CHEK COMFORT CV (GLUCOSE) TEST STRIP [Concomitant]
  10. INSULIN NOVOLIN 70/30 (NPH/REG) [Concomitant]
  11. METFORMIN HCL [Concomitant]
  12. INSULIN SYRG [Concomitant]
  13. ASPIRIN [Concomitant]
  14. FISH OIL [Concomitant]
  15. FLAXSEED OIL [Concomitant]

REACTIONS (2)
  - DEHYDRATION [None]
  - RENAL FAILURE [None]
